FAERS Safety Report 4702666-5 (Version None)
Quarter: 2005Q2

REPORT INFORMATION
  Report Type: 
  Country: None (occurrence: None)
  Receive Date: 20050629
  Receipt Date: 20041027
  Transmission Date: 20051028
  Serious: No
  Sender: FDA-Public Use
  Company Number: US-GLAXOSMITHKLINE-A0531550A

PATIENT
  Age: 39 Year
  Sex: Male

DRUGS (2)
  1. ZYBAN [Suspect]
     Dosage: 150MG TWICE PER DAY
     Route: 048
     Dates: start: 20040901
  2. AMBIEN [Concomitant]

REACTIONS (3)
  - ABNORMAL FAECES [None]
  - CONFUSIONAL STATE [None]
  - IRRITABILITY [None]
